FAERS Safety Report 7681600 (Version 1)
Quarter: 2020Q3

REPORT INFORMATION
  Report Type: Report from Study
  Country: US (occurrence: US)
  Receive Date: 20101124
  Receipt Date: 20101124
  Transmission Date: 20201104
  Serious: Yes (Hospitalization)
  Sender: FDA-Public Use
  Company Number: US-JNJFOC-20101106288

PATIENT
  Age: 46 Year
  Sex: Male
  Weight: 101.15 kg

DRUGS (6)
  1. GOLIMUMAB [Suspect]
     Active Substance: GOLIMUMAB
     Route: 058
  2. USTEKINUMAB [Suspect]
     Active Substance: USTEKINUMAB
     Route: 058
  3. GOLIMUMAB [Suspect]
     Active Substance: GOLIMUMAB
     Indication: SARCOIDOSIS
     Route: 058
  4. PLACEBO [Suspect]
     Active Substance: UNSPECIFIED INGREDIENT
     Indication: SARCOIDOSIS
     Route: 058
  5. USTEKINUMAB [Suspect]
     Active Substance: USTEKINUMAB
     Indication: SARCOIDOSIS
     Route: 058
  6. PLACEBO [Suspect]
     Active Substance: UNSPECIFIED INGREDIENT
     Route: 058

REACTIONS (1)
  - Upper respiratory tract infection [Unknown]

NARRATIVE: CASE EVENT DATE: 20101116
